FAERS Safety Report 5630434-9 (Version None)
Quarter: 2008Q1

REPORT INFORMATION
  Report Type: 
  Country: None (occurrence: None)
  Receive Date: 20080219
  Receipt Date: 20080211
  Transmission Date: 20080703
  Serious: Yes (Other)
  Sender: FDA-Public Use
  Company Number: FR-BRISTOL-MYERS SQUIBB COMPANY-14074488

PATIENT
  Age: 31 Year
  Sex: Female

DRUGS (4)
  1. REYATAZ [Suspect]
     Indication: HIV INFECTION
  2. RITONAVIR [Concomitant]
  3. LAMIVUDINE [Concomitant]
  4. NEVIRAPINE [Concomitant]

REACTIONS (2)
  - PREGNANCY [None]
  - PREMATURE BABY [None]
